FAERS Safety Report 7712583-4 (Version None)
Quarter: 2011Q3

REPORT INFORMATION
  Report Type: 
  Country: None (occurrence: None)
  Receive Date: 20110826
  Receipt Date: 20110701
  Transmission Date: 20111222
  Serious: Yes (Hospitalization, Disabling)
  Sender: FDA-Public Use
  Company Number: US-ASTRAZENECA-2009UW17742

PATIENT
  Age: 43 Year
  Sex: Male
  Weight: 99.8 kg

DRUGS (11)
  1. INVEGA [Concomitant]
     Dates: start: 20071029
  2. HALDOL [Concomitant]
  3. SEROQUEL [Suspect]
     Indication: BIPOLAR DISORDER
     Route: 048
     Dates: start: 19940101
  4. CLOZAPINE [Concomitant]
  5. BENADRYL [Concomitant]
  6. PSEUDOEPHEDRINE HCL [Concomitant]
  7. ALPRAZOLAM [Concomitant]
     Dates: start: 20071029
  8. SEROQUEL [Suspect]
     Dosage: 200-600MG
     Route: 048
     Dates: start: 19990101, end: 20090101
  9. SEROQUEL [Suspect]
     Dosage: 200-600MG
     Route: 048
     Dates: start: 19990101, end: 20090101
  10. ABILIFY [Concomitant]
     Dosage: 5 MG TO 10 MG PER DAY
  11. SEROQUEL [Suspect]
     Indication: SCHIZOPHRENIA
     Route: 048
     Dates: start: 19940101

REACTIONS (21)
  - TYPE 2 DIABETES MELLITUS [None]
  - HEART RATE ABNORMAL [None]
  - PAIN [None]
  - SELF INJURIOUS BEHAVIOUR [None]
  - POOR QUALITY SLEEP [None]
  - GAIT DISTURBANCE [None]
  - DRY MOUTH [None]
  - PANIC ATTACK [None]
  - DEAFNESS [None]
  - NASAL CONGESTION [None]
  - NOCTURNAL DYSPNOEA [None]
  - OBESITY [None]
  - BLOOD GLUCOSE ABNORMAL [None]
  - IMPAIRED DRIVING ABILITY [None]
  - POLYURIA [None]
  - PALPITATIONS [None]
  - AGGRESSION [None]
  - WEIGHT INCREASED [None]
  - AGITATION [None]
  - DISORIENTATION [None]
  - DRUG DOSE OMISSION [None]
